FAERS Safety Report 17372285 (Version 3)
Quarter: 2020Q1

REPORT INFORMATION
  Report Type: Spontaneous
  Country: US (occurrence: US)
  Receive Date: 20200205
  Receipt Date: 20200324
  Transmission Date: 20200409
  Serious: Yes (Other)
  Sender: FDA-Public Use
  Company Number: US-BAYER-2020-018551

PATIENT
  Age: 84 Year
  Sex: Female

DRUGS (3)
  1. LEVOFLOXACIN. [Concomitant]
     Active Substance: LEVOFLOXACIN
  2. PHILLIPS^ LIQUID GELS STOOL SOFTENER [Suspect]
     Active Substance: DOCUSATE SODIUM
     Indication: GASTROINTESTINAL DISORDER
     Dosage: 2 DF
     Route: 048
     Dates: start: 20200106, end: 20200117
  3. OXYCODONE [Concomitant]
     Active Substance: OXYCODONE
     Indication: ABDOMINAL DISCOMFORT

REACTIONS (26)
  - Burning sensation [Unknown]
  - Headache [Unknown]
  - Muscle spasms [Unknown]
  - Axillary pain [None]
  - Abdominal pain upper [None]
  - Dyspepsia [Unknown]
  - Pain [Unknown]
  - Abdominal distension [Unknown]
  - Muscle spasms [Unknown]
  - Back pain [Not Recovered/Not Resolved]
  - Pancreatic disorder [None]
  - Abdominal pain upper [Recovered/Resolved]
  - Eye disorder [Not Recovered/Not Resolved]
  - Gastric infection [Not Recovered/Not Resolved]
  - Vision blurred [Unknown]
  - Diarrhoea [Recovered/Resolved]
  - Genital burning sensation [None]
  - Gait disturbance [None]
  - Abdominal pain [Unknown]
  - Vision blurred [Not Recovered/Not Resolved]
  - Muscle spasms [Not Recovered/Not Resolved]
  - Abdominal discomfort [Not Recovered/Not Resolved]
  - Nausea [Recovered/Resolved]
  - Toxicity to various agents [Unknown]
  - Fatigue [Unknown]
  - Pain in extremity [Not Recovered/Not Resolved]

NARRATIVE: CASE EVENT DATE: 2020
